FAERS Safety Report 25299598 (Version 1)
Quarter: 2025Q2

REPORT INFORMATION
  Report Type: Spontaneous
  Country: IT (occurrence: IT)
  Receive Date: 20250512
  Receipt Date: 20250512
  Transmission Date: 20250717
  Serious: Yes (Other)
  Sender: ALK-ABELLO
  Company Number: IT-ALK-ABELLO A/S-2025AA001723

PATIENT

DRUGS (3)
  1. GRAZAX [Suspect]
     Active Substance: PHLEUM PRATENSE POLLEN
     Indication: Rhinitis allergic
     Route: 002
     Dates: start: 202502
  2. GRAZAX [Suspect]
     Active Substance: PHLEUM PRATENSE POLLEN
     Route: 002
     Dates: start: 202503
  3. EBASTINE [Concomitant]
     Active Substance: EBASTINE
     Dates: end: 20250424

REACTIONS (6)
  - Sialoadenitis [Recovered/Resolved]
  - Thirst [Recovered/Resolved]
  - Salivary gland calculus [Recovered/Resolved]
  - Wrong technique in product usage process [Unknown]
  - Underdose [Unknown]
  - Incorrect route of product administration [Unknown]

NARRATIVE: CASE EVENT DATE: 20250201
